FAERS Safety Report 6863777-1 (Version None)
Quarter: 2010Q3

REPORT INFORMATION
  Report Type: 
  Country: None (occurrence: None)
  Receive Date: 20100720
  Receipt Date: 20100705
  Transmission Date: 20110219
  Serious: Yes (Hospitalization, Other)
  Sender: FDA-Public Use
  Company Number: AUR-APL-2010-01710

PATIENT
  Age: 47 Year
  Sex: Female

DRUGS (6)
  1. TRIMETHOPRIM + SULFAMETHOXAZOLE [Suspect]
     Indication: PNEUMOCYSTIS JIROVECI PNEUMONIA
  2. MYCOPHENOLATE MOFETIL [Concomitant]
  3. TACROLIMUS [Concomitant]
  4. PREDNISONE [Concomitant]
  5. LEVOFLOXACIN [Concomitant]
  6. PIPERACILLIN AND TAZOBACTAM [Concomitant]

REACTIONS (2)
  - ACUTE RESPIRATORY FAILURE [None]
  - HYPOTENSION [None]
